FAERS Safety Report 8830549 (Version 3)
Quarter: 2013Q1

REPORT INFORMATION
  Report Type: Spontaneous
  Country: FR (occurrence: None)
  Receive Date: 20121004
  Receipt Date: 20121101
  Transmission Date: 20140127
  Serious: Yes (Other)
  Sender: FDA-Public Use
  Company Number: 1424938

PATIENT
  Age: 65 Year
  Sex: Female
  Weight: 50 kg

DRUGS (3)
  1. (CARBOPLATIN) [Suspect]
     Indication: OVARIAN CANCER
     Route: 041
     Dates: start: 20120201, end: 20121011
  2. (TAXOL) [Concomitant]
  3. (AVASTIN /00848101/) [Concomitant]

REACTIONS (1)
  - Epilepsy [None]
